FAERS Safety Report 24796561 (Version 1)
Quarter: 2025Q1

REPORT INFORMATION
  Report Type: Spontaneous
  Country: BE (occurrence: BE)
  Receive Date: 20250101
  Receipt Date: 20250101
  Transmission Date: 20250408
  Serious: Yes (Other)
  Sender: AMGEN
  Company Number: BE-AMGEN-BELSP2024253923

PATIENT

DRUGS (2)
  1. ARANESP [Suspect]
     Active Substance: DARBEPOETIN ALFA
     Indication: Product used for unknown indication
     Route: 065
  2. VENOFER [Suspect]
     Active Substance: IRON SUCROSE
     Indication: Product used for unknown indication
     Route: 040

REACTIONS (14)
  - Diabetes mellitus [Unknown]
  - Nephritis [Unknown]
  - Osteonecrosis [Unknown]
  - Neuropathy peripheral [Unknown]
  - Osteonecrosis of jaw [Unknown]
  - Second primary malignancy [Unknown]
  - Arrhythmia [Unknown]
  - Myocardial infarction [Unknown]
  - Thrombosis [Unknown]
  - Spondylitis [Unknown]
  - Sarcoidosis [Unknown]
  - Adverse event [Unknown]
  - Infection [Unknown]
  - Hypertension [Unknown]
